FAERS Safety Report 11528441 (Version 2)
Quarter: 2020Q2

REPORT INFORMATION
  Report Type: Spontaneous
  Country: US (occurrence: US)
  Receive Date: 20150921
  Receipt Date: 20200521
  Transmission Date: 20200713
  Serious: Yes (Other)
  Sender: FDA-Public Use
  Company Number: US-TEVA-567166USA

PATIENT
  Sex: Male
  Weight: 78 kg

DRUGS (11)
  1. ROPINIROLE. [Concomitant]
     Active Substance: ROPINIROLE
     Dosage: 1 MILLIGRAM DAILY; AT 8AM
  2. CLONAZEPAM. [Suspect]
     Active Substance: CLONAZEPAM
     Dosage: 1 MILLIGRAM DAILY; AT NIGHT
     Route: 065
  3. SIMVASTATIN. [Concomitant]
     Active Substance: SIMVASTATIN
     Dosage: 40 MILLIGRAM DAILY; AT NIGHT
  4. ROPINIROLE. [Concomitant]
     Active Substance: ROPINIROLE
     Dosage: 1 MILLIGRAM DAILY; 0.5MG AT 4PM AND 0.5MG AT 10PM
  5. MAGNESIUM [Concomitant]
     Active Substance: MAGNESIUM
     Dosage: 250 MILLIGRAM DAILY;
  6. CALCIUM W/VITAMIN D NOS [Concomitant]
     Active Substance: CALCIUM\VITAMIN D
     Dosage: 600 MILLIGRAM DAILY;
  7. VITAMIN B3 [Concomitant]
     Active Substance: NIACIN
     Dosage: 2000 IU (INTERNATIONAL UNIT) DAILY;
  8. CLONAZEPAM. [Suspect]
     Active Substance: CLONAZEPAM
     Dosage: HIGHER THAN 1MG
     Route: 065
  9. MULTIVITAMIN [Concomitant]
     Active Substance: VITAMINS
  10. VIAGRA [Suspect]
     Active Substance: SILDENAFIL CITRATE
     Dosage: MAYBE 3-4 TIMES A MONTH
     Route: 065
  11. VITAMIN B12 [Concomitant]
     Active Substance: CYANOCOBALAMIN
     Dosage: 1000 MICROGRAM DAILY;
     Route: 060

REACTIONS (1)
  - Erectile dysfunction [Recovered/Resolved]
